FAERS Safety Report 5033565-X (Version None)
Quarter: 2006Q2

REPORT INFORMATION
  Report Type: 
  Country: None (occurrence: None)
  Receive Date: 20060623
  Receipt Date: 20041027
  Transmission Date: 20061013
  Serious: Yes (Hospitalization, Disabling)
  Sender: FDA-Public Use
  Company Number: US-ROCHE-384554

PATIENT
  Age: 20 Year
  Sex: Female
  Weight: 65.8 kg

DRUGS (3)
  1. ACCUTANE [Suspect]
     Dosage: DOSAGE REGIMEN: EVERY DAY
     Route: 048
     Dates: start: 19991206, end: 20000515
  2. MINOCYCLINE HCL [Concomitant]
     Route: 048
     Dates: start: 19991206
  3. ORTHO CYCLEN-28 [Concomitant]
     Dosage: DRUG NAME REPORTED AS ORTHO TRI-CYCLEN
     Route: 048

REACTIONS (68)
  - ABORTION THREATENED [None]
  - ANAEMIA [None]
  - ANOVULATORY CYCLE [None]
  - ANXIETY [None]
  - BACK PAIN [None]
  - BLOOD CHOLESTEROL INCREASED [None]
  - BLOOD GLUCOSE DECREASED [None]
  - BREAST MASS [None]
  - BREAST PAIN [None]
  - CAESAREAN SECTION [None]
  - CELLULITIS [None]
  - COAGULOPATHY [None]
  - COLITIS [None]
  - COLITIS ULCERATIVE [None]
  - CROHN'S DISEASE [None]
  - CYST [None]
  - DERMATITIS CONTACT [None]
  - DIZZINESS [None]
  - DRUG EXPOSURE BEFORE PREGNANCY [None]
  - DRUG HYPERSENSITIVITY [None]
  - DRUG INEFFECTIVE [None]
  - DRUG INTOLERANCE [None]
  - DRY SKIN [None]
  - ECZEMA [None]
  - EXCESSIVE GRANULATION TISSUE [None]
  - FALL [None]
  - FATIGUE [None]
  - GASTROENTERITIS [None]
  - GASTROINTESTINAL DISORDER [None]
  - HEAD INJURY [None]
  - HEADACHE [None]
  - HYPERCOAGULATION [None]
  - HYPERLIPIDAEMIA [None]
  - HYPOTENSION [None]
  - INFLAMMATORY BOWEL DISEASE [None]
  - INGROWN HAIR [None]
  - INSOMNIA [None]
  - INTERNAL INJURY [None]
  - INTESTINAL HAEMORRHAGE [None]
  - IRRITABLE BOWEL SYNDROME [None]
  - JOINT INJURY [None]
  - LIMB INJURY [None]
  - LOSS OF CONSCIOUSNESS [None]
  - MAJOR DEPRESSION [None]
  - MELANOCYTIC NAEVUS [None]
  - MENOMETRORRHAGIA [None]
  - MOOD ALTERED [None]
  - MULTI-ORGAN DISORDER [None]
  - MUSCULOSKELETAL STIFFNESS [None]
  - NAUSEA [None]
  - OEDEMA PERIPHERAL [None]
  - PAIN [None]
  - PELVIC PAIN [None]
  - RASH [None]
  - RECTAL HAEMORRHAGE [None]
  - SEBORRHOEIC KERATOSIS [None]
  - SHOULDER PAIN [None]
  - SINUS TACHYCARDIA [None]
  - SOMNOLENCE [None]
  - STRESS [None]
  - SYNCOPE VASOVAGAL [None]
  - TENDERNESS [None]
  - TREMOR [None]
  - UPPER RESPIRATORY TRACT INFECTION [None]
  - URINARY TRACT INFECTION [None]
  - VENTRICULAR EXTRASYSTOLES [None]
  - VISION BLURRED [None]
  - VOMITING [None]
